FAERS Safety Report 9538467 (Version 1)
Quarter: 2013Q2

REPORT INFORMATION
  Report Type: Spontaneous
  Country: US (occurrence: None)
  Receive Date: 20130517
  Receipt Date: 20130517
  Transmission Date: 20140414
  Serious: No
  Sender: FDA-Public Use
  Company Number: 1000043020

PATIENT
  Age: 63 Year
  Sex: Female

DRUGS (7)
  1. VIIBRYD (VILAZODONE HYDROCHLORIDE) (10 MILLIGRAM, TABLETS) [Suspect]
     Indication: SEASONAL AFFECTIVE DISORDER
     Dosage: 10 MG (10 MG, 1 IN 1 D), ORAL
     Route: 048
     Dates: start: 201210, end: 201301
  2. MELOXICAM (MELOXICAM) (MELOXICAM) [Concomitant]
  3. PREMARIN (ESTROGENS CONJUGATED) (ESTROGENS CONJUGATED) [Concomitant]
  4. BUPROPION (BUPROPION) (BUPROPION) [Concomitant]
  5. OMEPRAZOLE (OMEPRAZOLE) ((OMEPRAZOLE) [Concomitant]
  6. MAGNESIUM (MAGNESIUM) (MAGNESIUM) [Concomitant]
  7. FIBER (POLYCARBOPHIL CALCIUM) [Concomitant]

REACTIONS (3)
  - Alopecia [None]
  - Hyperhidrosis [None]
  - Off label use [None]
